APPROVED DRUG PRODUCT: LIDEX
Active Ingredient: FLUOCINONIDE
Strength: 0.05% **Federal Register determination that product was not discontinued or withdrawn for safety or effectiveness reasons**
Dosage Form/Route: CREAM;TOPICAL
Application: N016908 | Product #002
Applicant: ALVOGEN INC
Approved: Approved Prior to Jan 1, 1982 | RLD: Yes | RS: No | Type: DISCN